FAERS Safety Report 13262189 (Version 1)
Quarter: 2017Q1

REPORT INFORMATION
  Report Type: Spontaneous
  Country: US (occurrence: US)
  Receive Date: 20170222
  Receipt Date: 20170222
  Transmission Date: 20170428
  Serious: No
  Sender: FDA-Public Use
  Company Number: US-009507513-1701USA011923

PATIENT
  Age: 46 Year
  Sex: Male

DRUGS (2)
  1. NOXAFIL [Suspect]
     Active Substance: POSACONAZOLE
     Indication: MUCORMYCOSIS
     Route: 048
  2. MICAFUNGIN [Concomitant]
     Active Substance: MICAFUNGIN
     Indication: MUCORMYCOSIS

REACTIONS (1)
  - Drug ineffective [Unknown]
